FAERS Safety Report 18599170 (Version 1)
Quarter: 2020Q4

REPORT INFORMATION
  Report Type: Report from Study
  Country: US (occurrence: US)
  Receive Date: 20201210
  Receipt Date: 20201210
  Transmission Date: 20210114
  Serious: Yes (Hospitalization)
  Sender: FDA-Public Use
  Company Number: NVSC2020US327604

PATIENT
  Age: 10 Year
  Sex: Female
  Weight: 36.9 kg

DRUGS (23)
  1. MORPHINE [Concomitant]
     Active Substance: MORPHINE
     Indication: SICKLE CELL ANAEMIA WITH CRISIS
     Dosage: UNK
     Route: 065
     Dates: start: 20201023, end: 20201023
  2. MORPHINE [Concomitant]
     Active Substance: MORPHINE
     Dosage: UNK
     Route: 065
     Dates: start: 20201029, end: 20201031
  3. TORADOL [Concomitant]
     Active Substance: KETOROLAC TROMETHAMINE
     Indication: SICKLE CELL ANAEMIA WITH CRISIS
     Dosage: UNK
     Route: 065
     Dates: start: 20201009, end: 20201009
  4. ADAKVEO [Suspect]
     Active Substance: CRIZANLIZUMAB-TMCA
     Indication: SICKLE CELL DISEASE
     Dosage: 313 MG, Q4W
     Route: 042
     Dates: start: 20191210
  5. TORADOL [Concomitant]
     Active Substance: KETOROLAC TROMETHAMINE
     Dosage: UNK
     Route: 065
     Dates: start: 20201023, end: 20201023
  6. TORADOL [Concomitant]
     Active Substance: KETOROLAC TROMETHAMINE
     Dosage: UNK
     Route: 065
     Dates: start: 20201029, end: 20201031
  7. OXYCODONE [Concomitant]
     Active Substance: OXYCODONE
     Indication: SICKLE CELL DISEASE
     Dosage: UNK
     Route: 065
     Dates: start: 20200905, end: 20201108
  8. MORPHINE SULFATE. [Concomitant]
     Active Substance: MORPHINE SULFATE
     Indication: SICKLE CELL ANAEMIA WITH CRISIS
     Dosage: UNK
     Route: 065
     Dates: start: 20201009, end: 20201009
  9. FLU VACCINE VII [Concomitant]
     Active Substance: INFLUENZA VIRUS VACCINE
     Indication: SICKLE CELL ANAEMIA WITH CRISIS
     Dosage: UNK
     Route: 065
     Dates: start: 20201024, end: 20201024
  10. MOTRIN [Concomitant]
     Active Substance: IBUPROFEN
     Dosage: UNK
     Route: 065
     Dates: start: 20201031, end: 20201031
  11. ENULOSE [Concomitant]
     Active Substance: LACTULOSE
     Indication: PROPHYLAXIS
     Dosage: UNK
     Route: 065
     Dates: start: 20190906
  12. MAG-OX [Concomitant]
     Active Substance: MAGNESIUM OXIDE
     Indication: SICKLE CELL ANAEMIA WITH CRISIS
     Dosage: UNK
     Route: 065
     Dates: start: 20201024, end: 20201024
  13. HYDROXYUREA. [Concomitant]
     Active Substance: HYDROXYUREA
     Indication: SICKLE CELL DISEASE
     Dosage: UNK
     Route: 065
     Dates: start: 20200210
  14. SENNOSIDE [Concomitant]
     Active Substance: SENNOSIDES
     Indication: PROPHYLAXIS
     Dosage: UNK
     Route: 065
     Dates: start: 20181203
  15. OXYCODONE [Concomitant]
     Active Substance: OXYCODONE
     Indication: SICKLE CELL ANAEMIA WITH CRISIS
     Dosage: UNK
     Route: 065
     Dates: start: 20180530
  16. ZANTAC [Concomitant]
     Active Substance: RANITIDINE HYDROCHLORIDE
     Indication: PROPHYLAXIS
     Dosage: UNK
     Route: 065
     Dates: start: 20191103
  17. ZOFRAN [Concomitant]
     Active Substance: ONDANSETRON HYDROCHLORIDE
     Dosage: UNK
     Route: 065
     Dates: start: 20201029, end: 20201029
  18. MOTRIN [Concomitant]
     Active Substance: IBUPROFEN
     Indication: SICKLE CELL ANAEMIA WITH CRISIS
     Dosage: UNK
     Route: 065
     Dates: start: 20201024, end: 20201024
  19. CEFTRIAXONE. [Concomitant]
     Active Substance: CEFTRIAXONE
     Indication: SICKLE CELL ANAEMIA WITH CRISIS
     Dosage: UNK
     Route: 065
     Dates: start: 20201023, end: 20201023
  20. GABAPENTIN. [Concomitant]
     Active Substance: GABAPENTIN
     Indication: MYALGIA
     Dosage: UNK
     Route: 065
     Dates: start: 20200806
  21. ZOFRAN [Concomitant]
     Active Substance: ONDANSETRON HYDROCHLORIDE
     Indication: SICKLE CELL ANAEMIA WITH CRISIS
     Dosage: UNK
     Route: 065
     Dates: start: 20201009, end: 20201009
  22. ZOFRAN [Concomitant]
     Active Substance: ONDANSETRON HYDROCHLORIDE
     Dosage: UNK
     Route: 065
     Dates: start: 20201023, end: 20201023
  23. MORPHINE SULFATE. [Concomitant]
     Active Substance: MORPHINE SULFATE
     Dosage: UNK
     Route: 065
     Dates: start: 20201029, end: 20201029

REACTIONS (1)
  - Infusion related reaction [Recovered/Resolved]

NARRATIVE: CASE EVENT DATE: 20201029
